FAERS Safety Report 8454338-1 (Version None)
Quarter: 2012Q2

REPORT INFORMATION
  Report Type: 
  Country: None (occurrence: None)
  Receive Date: 20120621
  Receipt Date: 20120315
  Transmission Date: 20120825
  Serious: No
  Sender: FDA-Public Use
  Company Number: US-ALLERGAN-1203776US

PATIENT
  Sex: Female

DRUGS (3)
  1. ZYLET [Concomitant]
     Indication: POSTOPERATIVE CARE
     Dosage: UNK
     Route: 047
  2. LUMIGAN [Suspect]
     Indication: GLAUCOMA
     Dosage: 1 GTT, UNK
     Route: 047
     Dates: start: 20120301, end: 20120310
  3. LUMIGAN [Suspect]
     Indication: INTRAOCULAR PRESSURE INCREASED

REACTIONS (6)
  - VISUAL ACUITY REDUCED [None]
  - INSTILLATION SITE ERYTHEMA [None]
  - SCLERAL HYPERAEMIA [None]
  - INSTILLATION SITE PAIN [None]
  - VISION BLURRED [None]
  - KERATITIS [None]
